FAERS Safety Report 7992267-8 (Version None)
Quarter: 2011Q4

REPORT INFORMATION
  Report Type: 
  Country: None (occurrence: None)
  Receive Date: 20111219
  Receipt Date: 20110209
  Transmission Date: 20120403
  Serious: No
  Sender: FDA-Public Use
  Company Number: US-ASTRAZENECA-2011SE07991

PATIENT
  Age: 83 Year
  Sex: Female

DRUGS (6)
  1. ZESTRIL [Concomitant]
  2. LEVOTHYROXINE SODIUM [Concomitant]
  3. PREDNISONE TAB [Concomitant]
     Indication: ORGANISING PNEUMONIA
  4. CRESTOR [Suspect]
     Indication: HYPERCHOLESTEROLAEMIA
     Route: 048
     Dates: start: 20091201
  5. PLAVIX [Concomitant]
  6. COREG [Concomitant]

REACTIONS (3)
  - MUSCULOSKELETAL STIFFNESS [None]
  - RESTLESS LEGS SYNDROME [None]
  - MUSCLE SPASMS [None]
